FAERS Safety Report 9757587 (Version 4)
Quarter: 2014Q4

REPORT INFORMATION
  Report Type: Report from Study
  Country: US (occurrence: US)
  Receive Date: 20131216
  Receipt Date: 20141009
  Transmission Date: 20150529
  Serious: Yes (Hospitalization, Other)
  Sender: FDA-Public Use
  Company Number: US-BIOGENIDEC-2013BI098320

PATIENT
  Age: 62 Year
  Sex: Male

DRUGS (6)
  1. AVONEX [Suspect]
     Active Substance: INTERFERON BETA-1A
     Indication: MULTIPLE SCLEROSIS
     Route: 030
  2. AVONEX [Suspect]
     Active Substance: INTERFERON BETA-1A
     Indication: MULTIPLE SCLEROSIS
     Route: 030
     Dates: start: 20030629
  3. LOVENOX [Concomitant]
     Active Substance: ENOXAPARIN SODIUM
     Indication: ROAD TRAFFIC ACCIDENT
  4. AVONEX [Suspect]
     Active Substance: INTERFERON BETA-1A
     Indication: MULTIPLE SCLEROSIS
     Route: 030
     Dates: start: 2003
  5. PERCOCET [Concomitant]
     Active Substance: ACETAMINOPHEN\OXYCODONE HYDROCHLORIDE
     Indication: INJURY
  6. AVONEX [Suspect]
     Active Substance: INTERFERON BETA-1A
     Indication: MULTIPLE SCLEROSIS
     Route: 030
     Dates: start: 201108

REACTIONS (22)
  - Femur fracture [Not Recovered/Not Resolved]
  - Skin cancer [Unknown]
  - Memory impairment [Not Recovered/Not Resolved]
  - Malaise [Recovered/Resolved]
  - Sudden onset of sleep [Recovered/Resolved]
  - Decreased immune responsiveness [Not Recovered/Not Resolved]
  - Jaw fracture [Recovered/Resolved]
  - Sensory disturbance [Recovered/Resolved]
  - Apathy [Recovered/Resolved]
  - Feeling abnormal [Recovered/Resolved]
  - Wrist fracture [Recovered/Resolved]
  - Multiple fractures [Not Recovered/Not Resolved]
  - Trigeminal neuralgia [Recovered/Resolved]
  - Drug administered at inappropriate site [Recovered/Resolved]
  - Road traffic accident [Recovered/Resolved]
  - Mobility decreased [Not Recovered/Not Resolved]
  - Impaired healing [Not Recovered/Not Resolved]
  - Facial bones fracture [Recovered/Resolved]
  - Contusion [Recovered/Resolved]
  - Concussion [Recovered/Resolved]
  - Depression [Not Recovered/Not Resolved]
  - Influenza like illness [Recovered/Resolved]

NARRATIVE: CASE EVENT DATE: 1999
